FAERS Safety Report 25144086 (Version 3)
Quarter: 2025Q2

REPORT INFORMATION
  Report Type: Spontaneous
  Country: US (occurrence: US)
  Receive Date: 20250401
  Receipt Date: 20250409
  Transmission Date: 20250716
  Serious: No
  Sender: ZEALAND PHARMACEUTICALS
  Company Number: US-ZPPROD-ZP25US001008

PATIENT

DRUGS (1)
  1. ZEGALOGUE [Suspect]
     Active Substance: DASIGLUCAGON
     Indication: Hypoglycaemia
     Route: 058
     Dates: start: 202412

REACTIONS (4)
  - Blood glucose fluctuation [Not Recovered/Not Resolved]
  - Feeling abnormal [Unknown]
  - Blood glucagon decreased [Unknown]
  - Off label use [Unknown]
